FAERS Safety Report 9068926 (Version 1)
Quarter: 2013Q1

REPORT INFORMATION
  Report Type: Spontaneous
  Country: CH (occurrence: None)
  Receive Date: 20130122
  Receipt Date: 20130122
  Transmission Date: 20140127
  Serious: Yes (Hospitalization)
  Sender: FDA-Public Use
  Company Number: DSM-2013-00067

PATIENT
  Age: 80 Year
  Sex: Male

DRUGS (5)
  1. VOTUM [Suspect]
     Indication: HYPERTENSION
     Route: 048
     Dates: end: 20121207
  2. TORASEM (TORASEMIDE) (TORASEMIDE) [Concomitant]
  3. SPIRIVA (TIOTROPIUM BROMIDE)(TIOTROPIUM BROMIDE) [Concomitant]
  4. ?PANTOZOL (PANTOPRAZOLE SODIUM)(PANTOPRAZOLE SODIUM) [Concomitant]
  5. ACIDUM FOLICUM (FOLIC ACID)(FOLIC ACID) [Concomitant]

REACTIONS (8)
  - Hyperkalaemia [None]
  - Renal failure acute [None]
  - Pulmonary embolism [None]
  - Lung infiltration [None]
  - Respiratory failure [None]
  - Cardiomegaly [None]
  - Aortic arteriosclerosis [None]
  - Dilatation ventricular [None]
